FAERS Safety Report 5034219-6 (Version None)
Quarter: 2006Q2

REPORT INFORMATION
  Report Type: 
  Country: None (occurrence: None)
  Receive Date: 20060626
  Receipt Date: 20060621
  Transmission Date: 20061013
  Serious: Yes (Other)
  Sender: FDA-Public Use
  Company Number: JP-JPN-A200602223

PATIENT
  Age: 71 Year
  Sex: Female

DRUGS (2)
  1. ZANTAC [Suspect]
     Indication: DRUG USE FOR UNKNOWN INDICATION
     Dosage: 4ML PER DAY
     Route: 042
     Dates: start: 20060620, end: 20060620
  2. DECADRON [Concomitant]
     Route: 065

REACTIONS (1)
  - SHOCK [None]
